FAERS Safety Report 6729682-6 (Version None)
Quarter: 2010Q2

REPORT INFORMATION
  Report Type: 
  Country: None (occurrence: None)
  Receive Date: 20100518
  Receipt Date: 20100512
  Transmission Date: 20101027
  Serious: Yes (Other)
  Sender: FDA-Public Use
  Company Number: ES-JNJFOC-20100503815

PATIENT
  Age: 79 Year
  Sex: Male

DRUGS (3)
  1. TAVANIC [Suspect]
     Indication: DRUG USE FOR UNKNOWN INDICATION
     Route: 048
  2. TAVANIC [Suspect]
     Route: 048
  3. ZELDOX [Suspect]
     Indication: SCHIZOPHRENIA
     Route: 048

REACTIONS (2)
  - FEBRILE CONVULSION [None]
  - OXYGEN SATURATION DECREASED [None]
